FAERS Safety Report 5175252-3 (Version None)
Quarter: 2006Q4

REPORT INFORMATION
  Report Type: 
  Country: None (occurrence: None)
  Receive Date: 20061211
  Receipt Date: 20061211
  Transmission Date: 20070319
  Serious: Yes (Other)
  Sender: FDA-Public Use
  Company Number: None

PATIENT
  Age: 34 Year
  Sex: Female
  Weight: 120.2032 kg

DRUGS (1)
  1. LEVOTHYROXINE SODIUM [Suspect]
     Indication: HYPOTHYROIDISM
     Dosage: SYNTHROID 200 MCG SYNTHROID 50 MCG

REACTIONS (2)
  - DYSFUNCTIONAL UTERINE BLEEDING [None]
  - PHARMACEUTICAL PRODUCT COMPLAINT [None]
